FAERS Safety Report 6243823-9 (Version None)
Quarter: 2009Q2

REPORT INFORMATION
  Report Type: 
  Country: None (occurrence: None)
  Receive Date: 20090623
  Receipt Date: 20090608
  Transmission Date: 20091009
  Serious: Yes (Hospitalization)
  Sender: FDA-Public Use
  Company Number: KV200801036

PATIENT
  Age: 86 Year
  Sex: Female
  Weight: 55.3 kg

DRUGS (8)
  1. PROPAFENONE HCL [Suspect]
     Indication: ATRIAL FIBRILLATION
     Dosage: 225 MG, TID, ORAL
     Route: 048
     Dates: end: 20080820
  2. HYDROCHLOROTHIAZIDE [Concomitant]
  3. DIGOXIN [Concomitant]
  4. COUMADIN [Concomitant]
  5. POTASSIUM (POTASSIUM) [Concomitant]
  6. TOPROL-XL [Concomitant]
  7. XANAX [Concomitant]
  8. LIPITOR [Concomitant]

REACTIONS (8)
  - CONTUSION [None]
  - DIZZINESS [None]
  - FALL [None]
  - INCORRECT DOSE ADMINISTERED [None]
  - MYOCARDIAL INFARCTION [None]
  - PRESYNCOPE [None]
  - PRODUCT QUALITY ISSUE [None]
  - SKIN LACERATION [None]
